FAERS Safety Report 6554048-1 (Version None)
Quarter: 2010Q1

REPORT INFORMATION
  Report Type: 
  Country: None (occurrence: None)
  Receive Date: 20100125
  Receipt Date: 20100125
  Transmission Date: 20100710
  Serious: No
  Sender: FDA-Public Use
  Company Number: None

PATIENT
  Age: 62 Year
  Sex: Male
  Weight: 127.0072 kg

DRUGS (2)
  1. DILTIAZEM [Suspect]
     Dosage: ONE DAILY
  2. DILTIAZEM [Suspect]
     Dosage: ONE DAILY

REACTIONS (2)
  - PRODUCT QUALITY ISSUE [None]
  - PRODUCT SUBSTITUTION ISSUE [None]
